FAERS Safety Report 11266100 (Version 2)
Quarter: 2015Q3

REPORT INFORMATION
  Report Type: Spontaneous
  Country: BR (occurrence: BR)
  Receive Date: 20150713
  Receipt Date: 20150902
  Transmission Date: 20151125
  Serious: Yes (Death)
  Sender: FDA-Public Use
  Company Number: BR-PFIZER INC-2015228977

PATIENT
  Age: 40 Year
  Sex: Male

DRUGS (2)
  1. ATENOLOL. [Concomitant]
     Active Substance: ATENOLOL
     Dosage: UNK
  2. SUTENT [Suspect]
     Active Substance: SUNITINIB MALATE
     Indication: METASTATIC RENAL CELL CARCINOMA
     Dosage: 50 MG, CYCLIC (FOR 2 WEEKS WITH ONE WEEK RESTING)
     Route: 048
     Dates: start: 201502, end: 201506

REACTIONS (4)
  - Dyspnoea [Fatal]
  - Metastatic renal cell carcinoma [Fatal]
  - Pulmonary embolism [Fatal]
  - Disease progression [Fatal]

NARRATIVE: CASE EVENT DATE: 20150603
